FAERS Safety Report 6972368-3 (Version None)
Quarter: 2010Q3

REPORT INFORMATION
  Report Type: 
  Country: None (occurrence: None)
  Receive Date: 20100909
  Receipt Date: 20100903
  Transmission Date: 20110219
  Serious: Yes (Death)
  Sender: FDA-Public Use
  Company Number: PHHY2010AU59246

PATIENT
  Age: 43 Year
  Sex: Female

DRUGS (2)
  1. SANDIMMUNE [Suspect]
     Indication: LUNG TRANSPLANT
     Dosage: UNK
  2. AZATHIOPRINE [Concomitant]

REACTIONS (1)
  - PSEUDOMONAL SEPSIS [None]
